FAERS Safety Report 12189345 (Version 2)
Quarter: 2016Q3

REPORT INFORMATION
  Report Type: Spontaneous
  Country: US (occurrence: US)
  Receive Date: 20160317
  Receipt Date: 20160706
  Transmission Date: 20161109
  Serious: No
  Sender: FDA-Public Use
  Company Number: US-009507513-1603USA007664

PATIENT
  Age: 73 Year
  Sex: Female

DRUGS (1)
  1. RAGWITEK [Suspect]
     Active Substance: AMBROSIA ARTEMISIIFOLIA POLLEN
     Dosage: UNK
     Route: 048

REACTIONS (3)
  - Eructation [Unknown]
  - Oesophageal irritation [Unknown]
  - Oesophageal oedema [Unknown]
